FAERS Safety Report 8667001 (Version 2)
Quarter: 2012Q4

REPORT INFORMATION
  Report Type: 
  Country: US (occurrence: US)
  Receive Date: 20120716
  Receipt Date: 20121203
  Transmission Date: 20130627
  Serious: Yes (Hospitalization, Other)
  Sender: FDA-Public Use
  Company Number: US-ROCHE-1085040

PATIENT
  Age: 49 Year
  Sex: Male
  Weight: 104.42 kg

DRUGS (6)
  1. CELLCEPT [Suspect]
     Indication: TRANSPLANT
     Route: 048
     Dates: start: 20050805
  2. RAPAMUNE [Concomitant]
     Indication: TRANSPLANT
     Route: 048
  3. DIOVAN [Concomitant]
     Route: 048
     Dates: start: 20080319
  4. PREDNISONE [Concomitant]
     Indication: TRANSPLANT
     Route: 048
     Dates: start: 20050820
  5. GLIPIZIDE [Concomitant]
     Indication: DIABETES MELLITUS
     Route: 048
     Dates: start: 20121015
  6. ASA [Concomitant]
     Route: 048
     Dates: start: 20121015

REACTIONS (2)
  - Vascular compression [Unknown]
  - Liver transplant rejection [Recovered/Resolved]
